FAERS Safety Report 7292406-0 (Version None)
Quarter: 2011Q1

REPORT INFORMATION
  Report Type: 
  Country: None (occurrence: None)
  Receive Date: 20110215
  Receipt Date: 20110210
  Transmission Date: 20110831
  Serious: No
  Sender: FDA-Public Use
  Company Number: US-PFIZER INC-2011031015

PATIENT
  Sex: Female

DRUGS (6)
  1. PRISTIQ [Suspect]
     Dosage: UNK
  2. FISH OIL [Concomitant]
     Dosage: UNK
  3. VASOTEC [Concomitant]
     Dosage: UNK
  4. SYNTHROID [Concomitant]
     Dosage: UNK
  5. ESTROGEN NOS [Concomitant]
     Dosage: UNK
  6. ASCORBIC ACID [Concomitant]
     Dosage: UNK

REACTIONS (1)
  - HEART RATE IRREGULAR [None]
